FAERS Safety Report 9719007 (Version 1)
Quarter: 2013Q4

REPORT INFORMATION
  Report Type: Spontaneous
  Country: AR (occurrence: None)
  Receive Date: 20131126
  Receipt Date: 20131126
  Transmission Date: 20140711
  Serious: Yes (Other)
  Sender: FDA-Public Use
  Company Number: VAL_02830_2013

PATIENT
  Sex: Female

DRUGS (1)
  1. PARLODEL [Suspect]
     Indication: BLOOD PROLACTIN INCREASED
     Dosage: DF

REACTIONS (5)
  - Stress [None]
  - Pregnancy [None]
  - Foetal death [None]
  - Exposure during pregnancy [None]
  - Surgical failure [None]
